FAERS Safety Report 5448376-0 (Version None)
Quarter: 2007Q3

REPORT INFORMATION
  Report Type: 
  Country: None (occurrence: None)
  Receive Date: 20070906
  Receipt Date: 20070827
  Transmission Date: 20080115
  Serious: Yes (Hospitalization)
  Sender: FDA-Public Use
  Company Number: 2007BI018339

PATIENT
  Age: 29 Year
  Sex: Female
  Weight: 83.9154 kg

DRUGS (1)
  1. TYSABRI [Suspect]
     Indication: DRUG USE FOR UNKNOWN INDICATION
     Dosage: QM; IV
     Route: 042
     Dates: start: 20060801, end: 20070701

REACTIONS (3)
  - CHEST PAIN [None]
  - HEADACHE [None]
  - LOSS OF CONSCIOUSNESS [None]
